FAERS Safety Report 20084240 (Version 3)
Quarter: 2021Q4

REPORT INFORMATION
  Report Type: Report from Study
  Country: US (occurrence: US)
  Receive Date: 20211118
  Receipt Date: 20211224
  Transmission Date: 20220304
  Serious: Yes (Other)
  Sender: FDA-Public Use
  Company Number: US-PHARMACOVIGILANCE-US-KAD-21-00087

PATIENT
  Age: 62 Year
  Sex: Female

DRUGS (6)
  1. REZUROCK [Suspect]
     Active Substance: BELUMOSUDIL
     Indication: Graft versus host disease
     Dosage: 200 MILLIGRAM, BID
     Dates: start: 20210901
  2. JAKAFI [Concomitant]
     Active Substance: RUXOLITINIB
     Indication: Graft versus host disease
     Dosage: 10 MILLIGRAM, BID
     Dates: start: 20210102, end: 20210915
  3. HUMAN RED BLOOD CELL [Concomitant]
     Active Substance: HUMAN RED BLOOD CELL
     Indication: Cytopenia
     Dosage: UNK
  4. UNSPECIFIED INGREDIENT [Concomitant]
     Active Substance: UNSPECIFIED INGREDIENT
     Indication: Product used for unknown indication
     Dosage: UNK
  5. COREG [Concomitant]
     Active Substance: CARVEDILOL
     Indication: Hypertension
     Dosage: INCREASED DOSE
  6. UNSPECIFIED INGREDIENT [Concomitant]
     Active Substance: UNSPECIFIED INGREDIENT
     Indication: Graft versus host disease
     Dosage: UNK

REACTIONS (4)
  - Anaemia [Not Recovered/Not Resolved]
  - Hypertension [Recovered/Resolved]
  - Adverse event [Unknown]
  - Haemoglobin decreased [Recovered/Resolved]

NARRATIVE: CASE EVENT DATE: 20210915
